FAERS Safety Report 12402788 (Version 2)
Quarter: 2016Q2

REPORT INFORMATION
  Report Type: Spontaneous
  Country: US (occurrence: US)
  Receive Date: 20160525
  Receipt Date: 20160527
  Transmission Date: 20160815
  Serious: Yes (Other)
  Sender: FDA-Public Use
  Company Number: US-SA-2016SA074568

PATIENT
  Age: 67 Year
  Sex: Female

DRUGS (5)
  1. LANTUS SOLOSTAR [Suspect]
     Active Substance: INSULIN GLARGINE
     Indication: TYPE 2 DIABETES MELLITUS
     Dosage: DOSE:25 UNIT(S)
     Route: 065
  2. SOLOSTAR [Concomitant]
     Active Substance: DEVICE
     Indication: TYPE 2 DIABETES MELLITUS
  3. LANTUS SOLOSTAR [Suspect]
     Active Substance: INSULIN GLARGINE
     Indication: TYPE 2 DIABETES MELLITUS
     Dosage: DOSE:30 UNIT(S)
     Route: 065
     Dates: start: 2001
  4. SOLOSTAR [Concomitant]
     Active Substance: DEVICE
     Indication: TYPE 2 DIABETES MELLITUS
     Dates: start: 2001
  5. NOVOLOG [Concomitant]
     Active Substance: INSULIN ASPART
     Dosage: 2 UNITS WITH BREAKFAST, 4 UNITS WITH LUNCH AND 6 UNITS WITH DINNER

REACTIONS (6)
  - Blood glucose decreased [Unknown]
  - Chills [Unknown]
  - Loss of consciousness [Recovered/Resolved]
  - Visual impairment [Unknown]
  - Tremor [Unknown]
  - Fall [Unknown]
